FAERS Safety Report 24548046 (Version 1)
Quarter: 2024Q4

REPORT INFORMATION
  Report Type: Spontaneous
  Country: US (occurrence: US)
  Receive Date: 20241025
  Receipt Date: 20241025
  Transmission Date: 20250115
  Serious: No
  Sender: LEO PHARM
  Company Number: US-LEO Pharma-374450

PATIENT
  Age: 68 Year
  Sex: Female

DRUGS (13)
  1. ADBRY [Suspect]
     Active Substance: TRALOKINUMAB-LDRM
     Indication: Asthma
  2. potassium 10 meq [Concomitant]
     Indication: Product used for unknown indication
  3. albuterol nebulizer 2.5mg [Concomitant]
     Indication: Product used for unknown indication
     Dosage: 2.5 MG
  4. ZINC TAB 100MG [Concomitant]
     Indication: Product used for unknown indication
  5. PREDNISONE [Concomitant]
     Active Substance: PREDNISONE
     Indication: Product used for unknown indication
  6. ROSUVASTATIN [Concomitant]
     Active Substance: ROSUVASTATIN
     Indication: Product used for unknown indication
  7. ALBUTEROL SU AER 108 [Concomitant]
     Indication: Product used for unknown indication
  8. Spiriva resp aer 2.5mg [Concomitant]
     Indication: Product used for unknown indication
     Dosage: 2.5MG
  9. VALSARTAN [Concomitant]
     Active Substance: VALSARTAN
     Indication: Product used for unknown indication
  10. vitamin d 25mcg [Concomitant]
     Indication: Product used for unknown indication
  11. fish oil cap 1200mg [Concomitant]
     Indication: Product used for unknown indication
  12. DUPIXENT [Concomitant]
     Active Substance: DUPILUMAB
     Indication: Product used for unknown indication
     Dosage: SOP 300MG/2ML
  13. MONTELUKAST [Concomitant]
     Active Substance: MONTELUKAST
     Indication: Product used for unknown indication

REACTIONS (2)
  - Nasopharyngitis [Unknown]
  - Product use in unapproved indication [Unknown]
